FAERS Safety Report 21363955 (Version 1)
Quarter: 2022Q3

REPORT INFORMATION
  Report Type: Spontaneous
  Country: CN (occurrence: CN)
  Receive Date: 20220922
  Receipt Date: 20220922
  Transmission Date: 20221027
  Serious: Yes (Other)
  Sender: FDA-Public Use
  Company Number: CN-NOVARTISPH-NVSC2022CN213651

PATIENT
  Age: 11 Year
  Sex: Female

DRUGS (8)
  1. CYCLOSPORINE [Suspect]
     Active Substance: CYCLOSPORINE
     Indication: Myelosuppression
     Dosage: 0.048 G, BID
     Route: 041
     Dates: start: 20220411, end: 20220411
  2. CYCLOSPORINE [Suspect]
     Active Substance: CYCLOSPORINE
     Dosage: 0.060 G
     Route: 041
     Dates: start: 20220414, end: 20220414
  3. CYCLOSPORINE [Suspect]
     Active Substance: CYCLOSPORINE
     Dosage: 0.065 G, BID
     Route: 041
     Dates: start: 20220418, end: 20220418
  4. CYCLOSPORINE [Suspect]
     Active Substance: CYCLOSPORINE
     Dosage: 0.070 G, BID
     Route: 041
     Dates: start: 20220421, end: 20220421
  5. DEXTROSE [Concomitant]
     Active Substance: DEXTROSE
     Indication: Fluid replacement
     Dosage: 50 ML, BID
     Route: 041
     Dates: start: 20220411, end: 20220411
  6. DEXTROSE [Concomitant]
     Active Substance: DEXTROSE
     Dosage: 50 ML, BID
     Route: 041
     Dates: start: 20220414, end: 20220414
  7. DEXTROSE [Concomitant]
     Active Substance: DEXTROSE
     Dosage: 50 ML, BID
     Route: 041
     Dates: start: 20220418, end: 20220418
  8. DEXTROSE [Concomitant]
     Active Substance: DEXTROSE
     Dosage: 50 ML, BID
     Route: 041
     Dates: start: 20220421, end: 20220421

REACTIONS (1)
  - Hepatic enzyme abnormal [Recovering/Resolving]

NARRATIVE: CASE EVENT DATE: 20220423
